FAERS Safety Report 6426530-9 (Version None)
Quarter: 2009Q4

REPORT INFORMATION
  Report Type: 
  Country: None (occurrence: None)
  Receive Date: 20091016
  Receipt Date: 20080109
  Transmission Date: 20100525
  Serious: Yes (Other)
  Sender: FDA-Public Use
  Company Number: A03200800088

PATIENT
  Age: 51 Year
  Sex: Male

DRUGS (5)
  1. ELOXATIN [Suspect]
     Indication: RECTAL CANCER
     Dosage: INTRAVENOUS NOS
     Route: 042
     Dates: start: 20071212, end: 20071212
  2. FLUOROURACIL [Suspect]
     Indication: RECTAL CANCER
     Dates: end: 20071212
  3. LEUCOVORIN - UNKNOWN - UNIT DOSE: UNKNOWN [Suspect]
     Indication: RECTAL CANCER
     Dates: start: 20071212, end: 20071212
  4. PROCHLORPERAZINE EDISYLATE [Concomitant]
  5. PANTOPRAZOLE SODIUM [Concomitant]

REACTIONS (2)
  - LIPASE INCREASED [None]
  - PANCREATITIS [None]
